FAERS Safety Report 16500918 (Version 1)
Quarter: 2019Q2

REPORT INFORMATION
  Report Type: Spontaneous
  Country: US (occurrence: US)
  Receive Date: 20190520
  Receipt Date: 20190520
  Transmission Date: 20190711
  Serious: Yes (Life-Threatening, Hospitalization, Disabling, Other)
  Sender: FDA-Public Use
  Company Number: None

PATIENT
  Age: 62 Year
  Sex: Female
  Weight: 57.15 kg

DRUGS (6)
  1. CVS ADULT 50+ PROBIOTIC [Concomitant]
  2. EQUATE FIBER THERAPY--METHYCELLULOSE [Concomitant]
  3. GABAPENTIN. [Suspect]
     Active Substance: GABAPENTIN
     Indication: ANTIDEPRESSANT THERAPY
     Dosage: ?          QUANTITY:1 DF DOSAGE FORM;?
     Route: 048
     Dates: start: 20161031, end: 20170209
  4. GABAPENTIN. [Suspect]
     Active Substance: GABAPENTIN
     Indication: DRUG WITHDRAWAL SYNDROME
     Dosage: ?          QUANTITY:1 DF DOSAGE FORM;?
     Route: 048
     Dates: start: 20161031, end: 20170209
  5. DULOXETINE. [Concomitant]
     Active Substance: DULOXETINE
  6. CHILD^S MULTIVITAMIN [Concomitant]

REACTIONS (7)
  - Withdrawal syndrome [None]
  - Hot flush [None]
  - Agitation [None]
  - Suicide attempt [None]
  - Dyspnoea [None]
  - Irritability [None]
  - Skin tightness [None]

NARRATIVE: CASE EVENT DATE: 20170115
